FAERS Safety Report 8135680-0 (Version None)
Quarter: 2012Q1

REPORT INFORMATION
  Report Type: 
  Country: None (occurrence: None)
  Receive Date: 20120214
  Receipt Date: 20120207
  Transmission Date: 20120608
  Serious: Yes (Disabling)
  Sender: FDA-Public Use
  Company Number: NL-TEVA-322022ISR

PATIENT
  Sex: Female
  Weight: 98 kg

DRUGS (1)
  1. METHOTREXATE [Suspect]
     Indication: PSORIATIC ARTHROPATHY
     Dosage: .1429 DOSAGE FORMS;
     Dates: start: 20040101

REACTIONS (3)
  - INFLUENZA LIKE ILLNESS [None]
  - DEPRESSED MOOD [None]
  - NAUSEA [None]
